FAERS Safety Report 4936732-6 (Version None)
Quarter: 2006Q1

REPORT INFORMATION
  Report Type: 
  Country: None (occurrence: None)
  Receive Date: 20060302
  Receipt Date: 20060208
  Transmission Date: 20060701
  Serious: Yes (Other)
  Sender: FDA-Public Use
  Company Number: DE200601000055

PATIENT
  Sex: Male

DRUGS (5)
  1. ZYPREXA [Suspect]
     Indication: PSYCHOTIC DISORDER
     Dates: end: 20051215
  2. MESALAMINE [Concomitant]
  3. PREDNISONE TAB [Concomitant]
  4. PANTOPRAZOLE SODIUM [Concomitant]
  5. IDEOS (CALCIUM CARBONATE, COLECALCIFEROL) [Concomitant]

REACTIONS (4)
  - BLOOD AMYLASE INCREASED [None]
  - C-REACTIVE PROTEIN INCREASED [None]
  - LEUKOCYTOSIS [None]
  - LIPASE INCREASED [None]
